FAERS Safety Report 8163952-2 (Version None)
Quarter: 2012Q1

REPORT INFORMATION
  Report Type: 
  Country: None (occurrence: None)
  Receive Date: 20120224
  Receipt Date: 20120223
  Transmission Date: 20120608
  Serious: Yes (Hospitalization)
  Sender: FDA-Public Use
  Company Number: US-JNJFOC-20111101020

PATIENT
  Sex: Female
  Weight: 76.2 kg

DRUGS (4)
  1. REMICADE [Suspect]
     Indication: RHEUMATOID ARTHRITIS
     Route: 042
     Dates: start: 20110824
  2. CARDIZEM [Concomitant]
     Indication: HYPERTENSION
     Route: 048
     Dates: start: 20060101
  3. DYAZIDE [Concomitant]
     Indication: HYPERTENSION
     Route: 048
  4. XANAX [Concomitant]
     Indication: ANXIETY
     Route: 048

REACTIONS (16)
  - GASTRIC DISORDER [None]
  - LOSS OF CONSCIOUSNESS [None]
  - URTICARIA [None]
  - MUSCULAR WEAKNESS [None]
  - FEELING HOT [None]
  - ORAL HERPES [None]
  - DYSGRAPHIA [None]
  - INSOMNIA [None]
  - HYPOAESTHESIA [None]
  - HEADACHE [None]
  - HYPOTONIA [None]
  - ABASIA [None]
  - MEMORY IMPAIRMENT [None]
  - CHILLS [None]
  - IMPAIRED DRIVING ABILITY [None]
  - NERVOUSNESS [None]
